FAERS Safety Report 13157710 (Version 1)
Quarter: 2017Q1

REPORT INFORMATION
  Report Type: Spontaneous
  Country: US (occurrence: US)
  Receive Date: 20170127
  Receipt Date: 20170127
  Transmission Date: 20170428
  Serious: No
  Sender: FDA-Public Use
  Company Number: US-JNJFOC-20161201181

PATIENT
  Age: 34 Year
  Sex: Male
  Weight: 85.73 kg

DRUGS (1)
  1. REMICADE [Suspect]
     Active Substance: INFLIXIMAB
     Indication: CROHN^S DISEASE
     Route: 042
     Dates: start: 2004, end: 20161130

REACTIONS (3)
  - Product use issue [Unknown]
  - Off label use [Unknown]
  - Zika virus infection [Unknown]

NARRATIVE: CASE EVENT DATE: 2004
